FAERS Safety Report 5323307-2 (Version None)
Quarter: 2007Q2

REPORT INFORMATION
  Report Type: 
  Country: None (occurrence: None)
  Receive Date: 20070221
  Receipt Date: 20061124
  Transmission Date: 20071010
  Serious: Yes (Other)
  Sender: FDA-Public Use
  Company Number: BDI-008888

PATIENT
  Age: 46 Year
  Sex: Female

DRUGS (2)
  1. IOPAMIDOL [Suspect]
     Indication: COMPUTERISED TOMOGRAM ABDOMEN
     Dosage: 100 ML ONCE IV
     Route: 042
     Dates: start: 20061124, end: 20061124
  2. IOPAMIDOL [Suspect]
     Indication: HAEMATURIA
     Dosage: 100 ML ONCE IV
     Route: 042
     Dates: start: 20061124, end: 20061124

REACTIONS (1)
  - HYPERSENSITIVITY [None]
